FAERS Safety Report 6212331-3 (Version None)
Quarter: 2009Q2

REPORT INFORMATION
  Report Type: 
  Country: None (occurrence: None)
  Receive Date: 20090529
  Receipt Date: 20090515
  Transmission Date: 20091009
  Serious: Yes (Hospitalization)
  Sender: FDA-Public Use
  Company Number: DSM-2009-00691

PATIENT
  Age: 87 Year
  Sex: Female

DRUGS (2)
  1. OLMESARTAN MEDOXOMIL [Suspect]
     Indication: HYPERTENSION
     Dosage: ORAL
     Route: 048
     Dates: start: 20081028, end: 20081113
  2. THEOSTAT (THEOPHYLLINE) (300 MILLIGRAM) (THEOPHYLLINE) [Suspect]
     Indication: DRUG USE FOR UNKNOWN INDICATION
     Dosage: 600 MG (300 MG, 2 IN 1 D), ORAL
     Route: 048

REACTIONS (1)
  - RENAL FAILURE CHRONIC [None]
